FAERS Safety Report 6749216-X (Version None)
Quarter: 2010Q2

REPORT INFORMATION
  Report Type: 
  Country: None (occurrence: None)
  Receive Date: 20100601
  Receipt Date: 20100427
  Transmission Date: 20101027
  Serious: No
  Sender: FDA-Public Use
  Company Number: US-BAYER-201014897BCC

PATIENT
  Age: 65 Year
  Sex: Female
  Weight: 76 kg

DRUGS (12)
  1. ALEVE [Suspect]
     Indication: ARTHRALGIA
     Dosage: TOTAL DAILY DOSE: 880 MG  UNIT DOSE: 220 MG
     Route: 048
     Dates: start: 20100401
  2. OMEPRAZOLE [Concomitant]
     Route: 065
  3. SIMVASTATIN [Concomitant]
     Route: 065
  4. ALENDRONATE [Concomitant]
     Route: 065
  5. DARVOCET [Concomitant]
     Route: 065
  6. PUBLIX IRION PILLS [Concomitant]
     Route: 065
  7. PUBLIX LOPERAMIDE [Concomitant]
     Route: 065
  8. XANAX [Concomitant]
     Route: 065
  9. WALGREENS ADVANCE FORMULA 50 AND OVER [Concomitant]
     Route: 065
  10. RISPERIDONE [Concomitant]
     Route: 065
  11. ATENOLOL [Concomitant]
     Route: 065
  12. METFORMIN HCL [Concomitant]
     Route: 065

REACTIONS (1)
  - VOMITING [None]
